FAERS Safety Report 19399795 (Version 2)
Quarter: 2021Q2

REPORT INFORMATION
  Report Type: Spontaneous
  Country: IT (occurrence: IT)
  Receive Date: 20210610
  Receipt Date: 20210618
  Transmission Date: 20210717
  Serious: No
  Sender: FDA-Public Use
  Company Number: ALC2021IT003584

PATIENT

DRUGS (2)
  1. ATROPINE. [Suspect]
     Active Substance: ATROPINE
     Dosage: 4 DRP (1/12 MILLILITRE))
     Route: 057
     Dates: start: 20210506, end: 20210506
  2. ATROPINE. [Suspect]
     Active Substance: ATROPINE
     Indication: MYDRIASIS
     Dosage: 1.12 MILLILITRE PER SQUARE METRE
     Route: 057
     Dates: start: 20210406

REACTIONS (1)
  - Aphasia [Recovered/Resolved]

NARRATIVE: CASE EVENT DATE: 20210506
